FAERS Safety Report 4706272-8 (Version None)
Quarter: 2005Q2

REPORT INFORMATION
  Report Type: 
  Country: None (occurrence: None)
  Receive Date: 20050629
  Receipt Date: 20041227
  Transmission Date: 20051028
  Serious: Yes (Hospitalization, Other)
  Sender: FDA-Public Use
  Company Number: 02/02158-USE

PATIENT
  Age: 39 Year
  Sex: Female
  Weight: 73 kg

DRUGS (6)
  1. YASMIN [Suspect]
     Indication: POLYCYSTIC OVARIES
     Dosage: 1 TAB(S), 1X/DAY, ORAL
     Route: 048
     Dates: start: 20020208, end: 20020225
  2. VIOXX [Suspect]
     Indication: DERMATOMYOSITIS
     Dosage: SEE IMAGE, ORAL
     Route: 048
     Dates: start: 19990817, end: 20020306
  3. VIOXX [Suspect]
     Indication: DERMATOMYOSITIS
     Dosage: SEE IMAGE, ORAL
     Route: 048
     Dates: start: 20020306, end: 20020730
  4. SANDIMMUNE (CICLOSPORIN) LIQUID [Concomitant]
  5. PRELONE LIQUID [Concomitant]
  6. PREDNISONE TAB [Concomitant]

REACTIONS (37)
  - BLINDNESS UNILATERAL [None]
  - BLOOD CHOLESTEROL INCREASED [None]
  - BLOOD TRIGLYCERIDES INCREASED [None]
  - BREATH SOUNDS DECREASED [None]
  - DEEP VEIN THROMBOSIS [None]
  - DEPRESSION [None]
  - DIABETES MELLITUS NON-INSULIN-DEPENDENT [None]
  - DIPLOPIA [None]
  - ELECTROCARDIOGRAM ST SEGMENT ABNORMAL [None]
  - ELECTROCARDIOGRAM T WAVE ABNORMAL [None]
  - FALL [None]
  - FIBROMYALGIA [None]
  - HAEMORRHAGIC STROKE [None]
  - HEART RATE IRREGULAR [None]
  - HYDROCEPHALUS [None]
  - INTERNATIONAL NORMALISED RATIO DECREASED [None]
  - JOINT EFFUSION [None]
  - LUNG DISORDER [None]
  - MEMORY IMPAIRMENT [None]
  - MUSCLE DISORDER [None]
  - OPTIC NERVE DISORDER [None]
  - PAIN [None]
  - PAPILLOEDEMA [None]
  - PHOTOPHOBIA [None]
  - RASH [None]
  - SEX HORMONE BINDING GLOBULIN DECREASED [None]
  - SINUS TACHYCARDIA [None]
  - SNEEZING [None]
  - SUBARACHNOID HAEMORRHAGE [None]
  - SUPERIOR SAGITTAL SINUS THROMBOSIS [None]
  - TINNITUS [None]
  - TUNNEL VISION [None]
  - UTERINE ENLARGEMENT [None]
  - UTERINE LEIOMYOMA [None]
  - VAGINAL HAEMORRHAGE [None]
  - VISION BLURRED [None]
  - VISUAL FIELD DEFECT [None]
